FAERS Safety Report 16784108 (Version 1)
Quarter: 2019Q3

REPORT INFORMATION
  Report Type: Report from Study
  Country: JP (occurrence: JP)
  Receive Date: 20190909
  Receipt Date: 20190909
  Transmission Date: 20191005
  Serious: Yes (Hospitalization)
  Sender: FDA-Public Use
  Company Number: JP-CELLTRION INC.-2017JP009219

PATIENT

DRUGS (27)
  1. INFLIXIMAB BS FOR I.V. INFUSION100 MG [NK] [Suspect]
     Active Substance: INFLIXIMAB
     Indication: COLITIS ULCERATIVE
     Dosage: 300 MG/BODY/DAY
     Route: 042
     Dates: start: 20161207, end: 20161207
  2. INFLIXIMAB BS FOR I.V. INFUSION100 MG [NK] [Suspect]
     Active Substance: INFLIXIMAB
     Dosage: 300 MG/BODY/DAY
     Route: 042
     Dates: start: 20170913, end: 20170913
  3. PENTASA [Concomitant]
     Active Substance: MESALAMINE
     Indication: COLITIS ULCERATIVE
     Dosage: 4G/DAY
     Dates: start: 20130919
  4. LANSOPRAZOLE. [Concomitant]
     Active Substance: LANSOPRAZOLE
     Indication: PROPHYLAXIS AGAINST GASTROINTESTINAL ULCER
     Dosage: 15 MG/DAY
     Dates: start: 20150218
  5. PREDNISOLONE. [Concomitant]
     Active Substance: PREDNISOLONE
     Indication: PYODERMA GANGRENOSUM
     Dosage: 10 MG/DAY
     Dates: start: 20161128, end: 20170122
  6. PREDNISOLONE. [Concomitant]
     Active Substance: PREDNISOLONE
     Dosage: 8 MG/DAY
     Dates: start: 20170220
  7. AMARYL [Concomitant]
     Active Substance: GLIMEPIRIDE
     Indication: DIABETES MELLITUS
     Dosage: 0.5 MG/DAY
     Dates: start: 20140414
  8. GLACTIV [Concomitant]
     Active Substance: SITAGLIPTIN
     Indication: DIABETES MELLITUS
     Dosage: 50 MG/DAY
     Dates: start: 20160921
  9. INFLIXIMAB BS FOR I.V. INFUSION100 MG [NK] [Suspect]
     Active Substance: INFLIXIMAB
     Dosage: 300 MG/BODY/DAY
     Route: 042
     Dates: start: 20180110
  10. BIO-THREE [Concomitant]
     Active Substance: HERBALS
     Indication: COLITIS ULCERATIVE
     Dosage: 3 DF/DAY
     Dates: start: 20160406
  11. PREDNISOLONE. [Concomitant]
     Active Substance: PREDNISOLONE
     Dosage: 9 MG/DAY
     Dates: start: 20170123
  12. PREDNISOLONE. [Concomitant]
     Active Substance: PREDNISOLONE
     Dosage: 7 MG/DAY
     Dates: start: 20170327, end: 20170521
  13. ANTEBATE [Concomitant]
     Active Substance: BETAMETHASONE DIPROPIONATE
     Indication: PYODERMA GANGRENOSUM
     Dosage: 2 DF ONCE OR TWICE DAILY
     Dates: start: 20170522, end: 20170710
  14. INFLIXIMAB BS FOR I.V. INFUSION100 MG [NK] [Suspect]
     Active Substance: INFLIXIMAB
     Dosage: 300 MG/BODY/DAY
     Route: 042
     Dates: start: 20161221, end: 20161221
  15. INFLIXIMAB BS FOR I.V. INFUSION100 MG [NK] [Suspect]
     Active Substance: INFLIXIMAB
     Dosage: 300 MG/BODY/DAY
     Route: 042
     Dates: start: 20170315, end: 20170315
  16. INFLIXIMAB BS FOR I.V. INFUSION100 MG [NK] [Suspect]
     Active Substance: INFLIXIMAB
     Dosage: 300 MG/BODY/DAY
     Route: 042
     Dates: start: 20171108, end: 20171108
  17. ELENTAL [Concomitant]
     Active Substance: AMINO ACIDS\CARBOHYDRATES\MINERALS\SOYBEAN OIL\VITAMINS
     Indication: COLITIS ULCERATIVE
     Dosage: 1 DF/DAY
     Dates: start: 20130920
  18. MIYA-BM [Concomitant]
     Active Substance: CLOSTRIDIUM BUTYRICUM SPORES STRAIN M-55
     Indication: COLITIS ULCERATIVE
     Dosage: 6 DF/DAY
     Dates: start: 20160406
  19. PREDNISOLONE. [Concomitant]
     Active Substance: PREDNISOLONE
     Dosage: 4 MG/DAY
     Dates: start: 20170904, end: 20171129
  20. INFLIXIMAB BS FOR I.V. INFUSION100 MG [NK] [Suspect]
     Active Substance: INFLIXIMAB
     Dosage: 300 MG/BODY/DAY
     Route: 042
     Dates: start: 20170118, end: 20170118
  21. INFLIXIMAB BS FOR I.V. INFUSION100 MG [NK] [Suspect]
     Active Substance: INFLIXIMAB
     Dosage: 300 MG/BODY/DAY
     Route: 042
     Dates: start: 20170517, end: 20170517
  22. FOSAMAC [Concomitant]
     Active Substance: ALENDRONATE SODIUM
     Indication: OSTEOPOROSIS PROPHYLAXIS
     Dosage: 35 MG/DAY
     Dates: start: 20121116
  23. MAGMITT [Concomitant]
     Active Substance: MAGNESIUM OXIDE
     Indication: CONSTIPATION PROPHYLAXIS
     Dosage: 250 MG/DAY
     Dates: start: 20160113
  24. PREDNISOLONE. [Concomitant]
     Active Substance: PREDNISOLONE
     Dosage: 6 MG/DAY
     Dates: start: 20170522, end: 20170709
  25. PREDNISOLONE. [Concomitant]
     Active Substance: PREDNISOLONE
     Dosage: 5 MG/DAY
     Dates: start: 20170710, end: 20170903
  26. PREDNISOLONE. [Concomitant]
     Active Substance: PREDNISOLONE
     Dosage: 3 MG/DAY
     Dates: start: 20171130
  27. LULICON [Concomitant]
     Active Substance: LULICONAZOLE
     Indication: DERMATOPHYTOSIS OF NAIL
     Dosage: 10 MG/DAY
     Dates: start: 20160831, end: 20161226

REACTIONS (5)
  - Overdose [Unknown]
  - Oedema peripheral [Not Recovered/Not Resolved]
  - Angina unstable [Recovering/Resolving]
  - Dry skin [Recovering/Resolving]
  - Product use issue [Unknown]

NARRATIVE: CASE EVENT DATE: 20161221
